FAERS Safety Report 23180758 (Version 1)
Quarter: 2023Q4

REPORT INFORMATION
  Report Type: Report from Study
  Country: US (occurrence: US)
  Receive Date: 20231114
  Receipt Date: 20231114
  Transmission Date: 20240110
  Serious: Yes (Other)
  Sender: FDA-Public Use
  Company Number: US-TAKEDA-2023TUS109852

PATIENT
  Age: 66 Year
  Sex: Female

DRUGS (16)
  1. TEDUGLUTIDE [Suspect]
     Active Substance: TEDUGLUTIDE
     Indication: Short-bowel syndrome
     Dosage: 2.900 MILLIGRAM, QD
     Route: 042
     Dates: start: 20140609, end: 20141023
  2. TEDUGLUTIDE [Suspect]
     Active Substance: TEDUGLUTIDE
     Indication: Short-bowel syndrome
     Dosage: 2.900 MILLIGRAM, QD
     Route: 042
     Dates: start: 20140609, end: 20141023
  3. TEDUGLUTIDE [Suspect]
     Active Substance: TEDUGLUTIDE
     Indication: Short-bowel syndrome
     Dosage: 2.900 MILLIGRAM, QD
     Route: 042
     Dates: start: 20140609, end: 20141023
  4. TEDUGLUTIDE [Suspect]
     Active Substance: TEDUGLUTIDE
     Indication: Short-bowel syndrome
     Dosage: 2.900 MILLIGRAM, QD
     Route: 042
     Dates: start: 20140609, end: 20141023
  5. TEDUGLUTIDE [Suspect]
     Active Substance: TEDUGLUTIDE
     Dosage: 2.7 MILLIGRAM, QD
     Route: 042
     Dates: start: 20190526, end: 20200320
  6. TEDUGLUTIDE [Suspect]
     Active Substance: TEDUGLUTIDE
     Dosage: 2.7 MILLIGRAM, QD
     Route: 042
     Dates: start: 20190526, end: 20200320
  7. TEDUGLUTIDE [Suspect]
     Active Substance: TEDUGLUTIDE
     Dosage: 2.7 MILLIGRAM, QD
     Route: 042
     Dates: start: 20190526, end: 20200320
  8. TEDUGLUTIDE [Suspect]
     Active Substance: TEDUGLUTIDE
     Dosage: 2.7 MILLIGRAM, QD
     Route: 042
     Dates: start: 20190526, end: 20200320
  9. TEDUGLUTIDE [Suspect]
     Active Substance: TEDUGLUTIDE
     Dosage: 2.620 MILLIGRAM, QD
     Route: 042
     Dates: start: 20200320, end: 20210405
  10. TEDUGLUTIDE [Suspect]
     Active Substance: TEDUGLUTIDE
     Dosage: 2.620 MILLIGRAM, QD
     Route: 042
     Dates: start: 20200320, end: 20210405
  11. TEDUGLUTIDE [Suspect]
     Active Substance: TEDUGLUTIDE
     Dosage: 2.620 MILLIGRAM, QD
     Route: 042
     Dates: start: 20200320, end: 20210405
  12. TEDUGLUTIDE [Suspect]
     Active Substance: TEDUGLUTIDE
     Dosage: 2.620 MILLIGRAM, QD
     Route: 042
     Dates: start: 20200320, end: 20210405
  13. CEFEPIME [Concomitant]
     Active Substance: CEFEPIME HYDROCHLORIDE
     Indication: Pneumatosis
     Dosage: 2 GRAM, TID
     Route: 042
     Dates: start: 20230707, end: 20230716
  14. METRONIDAZOLE [Concomitant]
     Active Substance: METRONIDAZOLE
     Indication: Pneumatosis
     Dosage: 500 MILLIGRAM
     Route: 042
     Dates: start: 20230707, end: 20230716
  15. VANCOMYCIN [Concomitant]
     Active Substance: VANCOMYCIN
     Indication: Pneumatosis
     Dosage: 1250 MILLIGRAM
     Route: 042
     Dates: start: 20230707, end: 20230707
  16. VANCOMYCIN [Concomitant]
     Active Substance: VANCOMYCIN
     Dosage: 500 MILLIGRAM, BID
     Route: 042
     Dates: start: 20230713, end: 20230716

REACTIONS (2)
  - Hypokalaemia [Recovered/Resolved]
  - Dehydration [Recovered/Resolved]

NARRATIVE: CASE EVENT DATE: 20230329
